FAERS Safety Report 19571242 (Version 1)
Quarter: 2021Q3

REPORT INFORMATION
  Report Type: Spontaneous
  Country: US (occurrence: US)
  Receive Date: 20210716
  Receipt Date: 20210716
  Transmission Date: 20211014
  Serious: Yes (Other)
  Sender: FDA-Public Use
  Company Number: US-PFIZER INC-2021842296

PATIENT
  Age: 36 Year
  Sex: Female

DRUGS (1)
  1. DOXORUBICIN HCL [Suspect]
     Active Substance: DOXORUBICIN HYDROCHLORIDE
     Dosage: UNK

REACTIONS (5)
  - Asthenia [Unknown]
  - Tachycardia [Unknown]
  - Dysphonia [Unknown]
  - Dyspnoea [Unknown]
  - Loss of consciousness [Unknown]
